FAERS Safety Report 14667736 (Version 1)
Quarter: 2018Q1

REPORT INFORMATION
  Report Type: Spontaneous
  Country: US (occurrence: US)
  Receive Date: 20180322
  Receipt Date: 20180322
  Transmission Date: 20180509
  Serious: No
  Sender: FDA-Public Use
  Company Number: US-PFIZER INC-2018116809

PATIENT
  Age: 49 Year
  Sex: Female

DRUGS (1)
  1. DROPERIDOL. [Suspect]
     Active Substance: DROPERIDOL
     Dosage: UNK

REACTIONS (3)
  - Condition aggravated [Unknown]
  - Restless legs syndrome [Unknown]
  - Drug hypersensitivity [Unknown]
